FAERS Safety Report 5025261-X (Version None)
Quarter: 2006Q2

REPORT INFORMATION
  Report Type: 
  Country: None (occurrence: None)
  Receive Date: 20060608
  Receipt Date: 20060608
  Transmission Date: 20061013
  Serious: Yes (Other)
  Sender: FDA-Public Use
  Company Number: None

PATIENT
  Age: 62 Year
  Sex: Female
  Weight: 70.3075 kg

DRUGS (2)
  1. FOSAMAX [Suspect]
     Indication: BONE DISORDER
     Dosage: 10 MG.  DAILY  PO
     Route: 048
     Dates: start: 19770801, end: 20051101
  2. FOSAMAX [Suspect]
     Indication: BONE DISORDER
     Dosage: 70 MG.  WEEKLY    PO
     Route: 048

REACTIONS (2)
  - PATHOLOGICAL FRACTURE [None]
  - PELVIC FRACTURE [None]
